FAERS Safety Report 7137514-X (Version None)
Quarter: 2010Q4

REPORT INFORMATION
  Report Type: 
  Country: None (occurrence: None)
  Receive Date: 20101119
  Receipt Date: 20101025
  Transmission Date: 20110411
  Serious: Yes (Death, Life-Threatening)
  Sender: FDA-Public Use
  Company Number: 54973

PATIENT
  Age: 3 Month
  Sex: Male

DRUGS (1)
  1. HYLAND'S TEETHING TABLETS [Suspect]
     Indication: TEETHING
     Dosage: NOT SURE BUT POSSIBLY DAY OF INCIDENT

REACTIONS (4)
  - CONVULSION [None]
  - PETIT MAL EPILEPSY [None]
  - PYREXIA [None]
  - SUDDEN INFANT DEATH SYNDROME [None]
